FAERS Safety Report 17701442 (Version 1)
Quarter: 2020Q2

REPORT INFORMATION
  Report Type: Report from Study
  Country: None (occurrence: US)
  Receive Date: 20200424
  Receipt Date: 20200424
  Transmission Date: 20200714
  Serious: Yes (Hospitalization, Other)
  Sender: FDA-Public Use
  Company Number: US-ABBVIE-20K-163-3367275-00

PATIENT
  Sex: Female

DRUGS (1)
  1. HUMIRA [Suspect]
     Active Substance: ADALIMUMAB
     Indication: CROHN^S DISEASE
     Route: 058

REACTIONS (5)
  - Foetal heart rate abnormal [Recovering/Resolving]
  - Complication of delivery [Recovering/Resolving]
  - Maternal exposure during pregnancy [Unknown]
  - Crohn^s disease [Unknown]
  - Live birth [Unknown]
